FAERS Safety Report 11165155 (Version 2)
Quarter: 2015Q2

REPORT INFORMATION
  Report Type: Report from Study
  Country: US (occurrence: US)
  Receive Date: 20150604
  Receipt Date: 20150615
  Transmission Date: 20150821
  Serious: Yes (Hospitalization)
  Sender: FDA-Public Use
  Company Number: US-GLAXOSMITHKLINE-US2015076548

PATIENT
  Age: 69 Year
  Sex: Male
  Weight: 76.4 kg

DRUGS (3)
  1. PREGABALIN. [Concomitant]
     Active Substance: PREGABALIN
     Indication: NEUROPATHY PERIPHERAL
     Dosage: 25 MG, BID
     Route: 048
     Dates: start: 20150528
  2. DABRAFENIB [Suspect]
     Active Substance: DABRAFENIB
     Indication: NEOPLASM MALIGNANT
     Dosage: 300 MG, UNK
     Route: 048
     Dates: start: 20141030
  3. TRAMETINIB [Suspect]
     Active Substance: TRAMETINIB
     Indication: NEOPLASM MALIGNANT
     Dosage: 2 MG, UNK
     Route: 048
     Dates: start: 20141030

REACTIONS (1)
  - Facial nerve disorder [Recovered/Resolved]

NARRATIVE: CASE EVENT DATE: 20150526
